FAERS Safety Report 8143950-5 (Version None)
Quarter: 2012Q1

REPORT INFORMATION
  Report Type: 
  Country: None (occurrence: None)
  Receive Date: 20120214
  Receipt Date: 20120125
  Transmission Date: 20120608
  Serious: Yes (Other)
  Sender: FDA-Public Use
  Company Number: ADR-5007,5008-047

PATIENT
  Age: 273 Day
  Sex: Female
  Weight: 3.1 kg

DRUGS (3)
  1. ZIDOVUDINE [Suspect]
     Indication: ACQUIRED IMMUNODEFICIENCY SYNDROME
     Dosage: 500 MG/DAY + ORAL
     Route: 048
     Dates: start: 20110805
  2. LAMIVUDINE [Suspect]
     Indication: ACQUIRED IMMUNODEFICIENCY SYNDROME
     Dosage: 300 MG/DAY + ORAL
     Route: 048
     Dates: start: 20110805
  3. RALTEGRAVIR [Concomitant]

REACTIONS (2)
  - HAEMANGIOMA [None]
  - MATERNAL DRUGS AFFECTING FOETUS [None]
